FAERS Safety Report 5066851-8 (Version None)
Quarter: 2006Q3

REPORT INFORMATION
  Report Type: 
  Country: None (occurrence: None)
  Receive Date: 20060726
  Receipt Date: 20060721
  Transmission Date: 20061208
  Serious: Yes (Hospitalization)
  Sender: FDA-Public Use
  Company Number: FR-2006-002642

PATIENT
  Age: 75 Year
  Sex: Male

DRUGS (5)
  1. SOTALOL HYDROCHLORIDE [Suspect]
     Indication: ARRHYTHMIA
     Dosage: ORAL
     Route: 048
  2. PRAVASTATIN [Suspect]
     Indication: HYPERCHOLESTEROLAEMIA
     Dosage: ORAL
     Route: 048
  3. PLAVIX [Suspect]
     Dosage: ORAL
     Route: 048
  4. DIALGIREX(DEXTROPROPOXYPHENE HYDROCHLORIDE, PARACETAMOL) [Suspect]
     Indication: ARTHRALGIA
  5. OMEPRAZOLE [Suspect]
     Indication: OESOPHAGITIS

REACTIONS (3)
  - MYCOSIS FUNGOIDES [None]
  - PSEUDOLYMPHOMA [None]
  - SKIN LESION [None]
